FAERS Safety Report 14276967 (Version 1)
Quarter: 2017Q4

REPORT INFORMATION
  Report Type: Spontaneous
  Country: ES (occurrence: ES)
  Receive Date: 20171211
  Receipt Date: 20171211
  Transmission Date: 20180321
  Serious: Yes (Other)
  Sender: FDA-Public Use
  Company Number: ES-OTSUKA-EU-2012-10183

PATIENT
  Age: 45 Year
  Sex: Female
  Weight: 90 kg

DRUGS (1)
  1. ABILIFY [Suspect]
     Active Substance: ARIPIPRAZOLE
     Indication: DELIRIUM
     Dosage: 10 MG, UNK
     Route: 048
     Dates: start: 20020221

REACTIONS (2)
  - Off label use [Unknown]
  - Weight increased [Not Recovered/Not Resolved]

NARRATIVE: CASE EVENT DATE: 20020221
